FAERS Safety Report 4705917-6 (Version None)
Quarter: 2005Q2

REPORT INFORMATION
  Report Type: 
  Country: None (occurrence: None)
  Receive Date: 20050630
  Receipt Date: 20050624
  Transmission Date: 20051028
  Serious: Yes (Other)
  Sender: FDA-Public Use
  Company Number: 142467USA

PATIENT
  Age: 63 Year
  Sex: Male

DRUGS (5)
  1. PIMOZIDE [Suspect]
     Indication: VASCULAR DEMENTIA
     Dosage: 1.5 MILLIGRAM/6 MILLIGRAM/3 MILLIGRAM ORAL
     Route: 048
     Dates: start: 20040316, end: 20010418
  2. PIMOZIDE [Suspect]
     Indication: VASCULAR DEMENTIA
     Dosage: 1.5 MILLIGRAM/6 MILLIGRAM/3 MILLIGRAM ORAL
     Route: 048
     Dates: start: 20010419, end: 20020322
  3. PIMOZIDE [Suspect]
     Indication: VASCULAR DEMENTIA
     Dosage: 1.5 MILLIGRAM/6 MILLIGRAM/3 MILLIGRAM ORAL
     Route: 048
     Dates: start: 20020323, end: 20020613
  4. TIAPRIDE HYDROCHLORIDE [Suspect]
     Dosage: 100 MILLIGRAM/75 MILLIGRAM ORAL
     Route: 048
     Dates: start: 20010222, end: 20020829
  5. TIAPRIDE HYDROCHLORIDE [Suspect]
     Dosage: 100 MILLIGRAM/75 MILLIGRAM ORAL
     Route: 048
     Dates: start: 20020830, end: 20030123

REACTIONS (6)
  - DROOLING [None]
  - DYSPHAGIA [None]
  - PARKINSONISM [None]
  - RESTLESSNESS [None]
  - SEDATION [None]
  - TARDIVE DYSKINESIA [None]
